FAERS Safety Report 8326959-8 (Version None)
Quarter: 2012Q2

REPORT INFORMATION
  Report Type: 
  Country: None (occurrence: None)
  Receive Date: 20120501
  Receipt Date: 20120423
  Transmission Date: 20120825
  Serious: Yes (Hospitalization, Other)
  Sender: FDA-Public Use
  Company Number: US-ABBOTT-12P-163-0928272-00

PATIENT
  Sex: Male
  Weight: 77.18 kg

DRUGS (7)
  1. CLONAZEPAM [Concomitant]
     Indication: ANXIETY
  2. OXYCONTIN [Suspect]
     Indication: PROCEDURAL PAIN
     Dates: start: 20100101
  3. MOBIC [Suspect]
     Indication: PROCEDURAL PAIN
     Dates: start: 20100101
  4. SIMCOR [Suspect]
  5. SIMCOR [Suspect]
     Indication: ARTERIOSCLEROSIS
     Dates: start: 20080101
  6. GREEN TEA [Concomitant]
     Indication: PRODUCT USED FOR UNKNOWN INDICATION
  7. FLURAZEPAM [Concomitant]
     Indication: INSOMNIA

REACTIONS (8)
  - PROCEDURAL PAIN [None]
  - OSTEOARTHRITIS [None]
  - BLOOD CREATININE INCREASED [None]
  - KNEE ARTHROPLASTY [None]
  - ANAL STENOSIS [None]
  - CONSTIPATION [None]
  - HAEMATOCHEZIA [None]
  - CHONDROCALCINOSIS PYROPHOSPHATE [None]
